FAERS Safety Report 11311697 (Version 3)
Quarter: 2015Q4

REPORT INFORMATION
  Report Type: Spontaneous
  Country: US (occurrence: US)
  Receive Date: 20150727
  Receipt Date: 20151028
  Transmission Date: 20160304
  Serious: Yes (Other)
  Sender: FDA-Public Use
  Company Number: US-ASTRAZENECA-2015SE69970

PATIENT
  Age: 831 Month
  Sex: Male
  Weight: 136.1 kg

DRUGS (15)
  1. METFORMIN [Concomitant]
     Active Substance: METFORMIN HYDROCHLORIDE
     Indication: DIABETES MELLITUS
     Route: 048
  2. AZATHIOPRINE. [Concomitant]
     Active Substance: AZATHIOPRINE
     Indication: COLITIS
     Route: 048
  3. VICODIN [Concomitant]
     Active Substance: ACETAMINOPHEN\HYDROCODONE BITARTRATE
     Indication: SCIATICA
     Dosage: 5/325 MG THREE TIMES A DAY AS NEEDED, 2 DF EVERY MORNING
     Route: 048
  4. SPIRIVA [Concomitant]
     Active Substance: TIOTROPIUM BROMIDE MONOHYDRATE
     Indication: ASBESTOSIS
     Dosage: 2.5 MG, TWO PUFFS TWICE DAILY
     Route: 055
     Dates: start: 201506
  5. VICODIN [Concomitant]
     Active Substance: ACETAMINOPHEN\HYDROCODONE BITARTRATE
     Indication: PAIN
     Dosage: 5/325 MG THREE TIMES A DAY AS NEEDED, 2 DF EVERY MORNING
     Route: 048
  6. MELOXICAM. [Concomitant]
     Active Substance: MELOXICAM
     Indication: MUSCLE SPASMS
     Dosage: 15 MG DAILY, WITH EVENING MEALS
     Route: 048
  7. CITALOPRAM [Concomitant]
     Active Substance: CITALOPRAM HYDROBROMIDE
     Indication: DEPRESSION
     Route: 048
     Dates: start: 2015
  8. SYMBICORT [Suspect]
     Active Substance: BUDESONIDE\FORMOTEROL FUMARATE DIHYDRATE
     Indication: CHRONIC OBSTRUCTIVE PULMONARY DISEASE
     Dosage: 160/4.5MCG, 2 PUFFS BID
     Route: 055
     Dates: start: 201506
  9. ESCITALOPRAM [Concomitant]
     Active Substance: ESCITALOPRAM OXALATE
     Indication: DEPRESSION
     Route: 048
     Dates: start: 2015
  10. LOSARTAN. [Concomitant]
     Active Substance: LOSARTAN
     Indication: BLOOD PRESSURE ABNORMAL
     Route: 048
  11. FOLIC ACID. [Concomitant]
     Active Substance: FOLIC ACID
     Indication: COLITIS
     Route: 048
  12. MELOXICAM. [Concomitant]
     Active Substance: MELOXICAM
     Indication: SCIATICA
     Dosage: 15 MG DAILY, WITH EVENING MEALS
     Route: 048
  13. SYMBICORT [Suspect]
     Active Substance: BUDESONIDE\FORMOTEROL FUMARATE DIHYDRATE
     Indication: EMPHYSEMA
     Dosage: 160/4.5MCG, 2 PUFFS BID
     Route: 055
     Dates: start: 201506
  14. CLONAZEPAM. [Concomitant]
     Active Substance: CLONAZEPAM
     Indication: ANXIETY
     Route: 048
     Dates: start: 2012
  15. SIMVASTATIN. [Concomitant]
     Active Substance: SIMVASTATIN
     Indication: BLOOD CHOLESTEROL ABNORMAL
     Route: 048

REACTIONS (12)
  - Obstructive airways disorder [Unknown]
  - Respiratory disorder [Unknown]
  - Throat irritation [Unknown]
  - Weight increased [Unknown]
  - Oesophageal candidiasis [Unknown]
  - Muscle spasms [Not Recovered/Not Resolved]
  - Dyspnoea exertional [Unknown]
  - Dysphagia [Unknown]
  - Sleep apnoea syndrome [Unknown]
  - Oropharyngeal pain [Unknown]
  - Cough [Unknown]
  - Oral candidiasis [Unknown]

NARRATIVE: CASE EVENT DATE: 201507
